FAERS Safety Report 7963432-0 (Version None)
Quarter: 2011Q4

REPORT INFORMATION
  Report Type: 
  Country: None (occurrence: None)
  Receive Date: 20111205
  Receipt Date: 20111118
  Transmission Date: 20120403
  Serious: Yes (Life-Threatening, Hospitalization)
  Sender: FDA-Public Use
  Company Number: 2011SGN00294

PATIENT
  Age: 29 Year
  Sex: Female
  Weight: 89.9 kg

DRUGS (27)
  1. BLEOMYCIN SULFATE [Suspect]
  2. DACARBAZINE [Suspect]
     Indication: HODGKIN'S DISEASE
     Dosage: 375 MG/M2, Q14D, INTRAVENOUS
     Route: 042
     Dates: start: 20110719, end: 20111026
  3. VITAMIN D3 (VITAMIN D3) [Concomitant]
  4. DIPHENYLPYRALINE HYDROCHLORIDE (DIPHENYLPYRALINE HYDROCHLORIDE) [Concomitant]
  5. GRANULOCYTE COLONY STIMULATING FACTOR (GRANULOCYTE COLONY STIMULATING [Concomitant]
  6. NYSTATIN [Concomitant]
  7. LIDOCAINE (LIDOCAINE HYDROCHLORIDE) [Concomitant]
  8. MYCELEX [Concomitant]
  9. DEXAMETHASONE SODIUM PHOSPHATE [Concomitant]
  10. MIRALAX [Concomitant]
  11. DOXORUBICIN HCL [Suspect]
     Indication: HODGKIN'S DISEASE
     Dosage: 25 MG/M2, Q14D, INTRAVENOUS
     Route: 042
     Dates: start: 20110719, end: 20111026
  12. ORTHO TRI-CYCLEN [Concomitant]
  13. PROCHLORPERAZINE (PROCHLORPERAZINE MALEATE) [Concomitant]
  14. VINBLASTINE SULFATE [Suspect]
     Indication: HODGKIN'S DISEASE
     Dosage: 6 MG/M2, Q14D, INTRAVENOUS
     Route: 042
     Dates: start: 20110719, end: 20111026
  15. IBUPROFEN [Concomitant]
  16. IRON (IRON) [Concomitant]
  17. ATIVAN [Concomitant]
  18. ACID REDUCER (RANITIDINE HYDROCHLORIDE) [Concomitant]
  19. ACETAMINOPHEN [Concomitant]
  20. HYDROCORTISONE (HYDROCORTISONE HYDROGEN SUCCINATE) [Concomitant]
  21. PRILOSEC [Concomitant]
  22. TRIAMCINOLONE ACETONIDE [Concomitant]
  23. BRENTUXIMAB VEDOTIN (BRENTUXIMAB VEDOTIN) INJECTION [Suspect]
     Indication: HODGKIN'S DISEASE
     Dosage: 1.2 MG/KG, Q14D, INTRAVENOUS
     Route: 042
     Dates: start: 20110719, end: 20111026
  24. SALINE (SALINE) [Concomitant]
  25. SODIUM BICARBONATE IN PLASTIC CONTAINER [Concomitant]
  26. FLUCONAZOLE [Concomitant]
  27. ZYRTEC [Concomitant]

REACTIONS (8)
  - INFECTION [None]
  - RESPIRATORY FAILURE [None]
  - DEHYDRATION [None]
  - FEBRILE NEUTROPENIA [None]
  - OROPHARYNGEAL PAIN [None]
  - DYSPHAGIA [None]
  - PNEUMOCYSTIS JIROVECI PNEUMONIA [None]
  - MUCOSAL INFLAMMATION [None]
